FAERS Safety Report 5474053-6 (Version None)
Quarter: 2007Q4

REPORT INFORMATION
  Report Type: 
  Country: None (occurrence: None)
  Receive Date: 20071002
  Receipt Date: 20070924
  Transmission Date: 20080405
  Serious: Yes (Disabling, Other)
  Sender: FDA-Public Use
  Company Number: PHRM2007FR02251

PATIENT
  Age: 53 Year
  Sex: Female

DRUGS (22)
  1. ZOMETA [Suspect]
     Indication: METASTASES TO BONE
     Dosage: 4 MG, TIW
     Route: 042
     Dates: start: 20040323, end: 20070423
  2. AREDIA [Suspect]
     Indication: METASTASES TO BONE
     Route: 042
     Dates: start: 20020516, end: 20030107
  3. LYTOS [Suspect]
     Indication: METASTASES TO BONE
     Dates: start: 20020516, end: 20040809
  4. ENDOXAN [Suspect]
     Indication: BREAST CANCER METASTATIC
     Route: 042
     Dates: start: 20070205, end: 20070308
  5. FLUOROURACIL [Suspect]
     Indication: BREAST CANCER METASTATIC
     Route: 042
     Dates: start: 20070205, end: 20070308
  6. NAVELBINE [Concomitant]
     Indication: BREAST CANCER METASTATIC
     Dosage: 10 COURSES
     Dates: start: 20020516, end: 20030107
  7. NAVELBINE [Concomitant]
     Dosage: 5 COURSES
     Dates: start: 20041117, end: 20050406
  8. THIOTEPA [Concomitant]
     Indication: BREAST CANCER METASTATIC
     Dosage: 10 COURSES
     Dates: start: 20020516, end: 20030107
  9. THIOTEPA [Concomitant]
     Dosage: 2 COURSES
     Dates: start: 20061026, end: 20061123
  10. CLASTOBAN [Concomitant]
     Indication: BREAST CANCER METASTATIC
     Dates: start: 20020516, end: 20030107
  11. AROMASIN [Concomitant]
     Indication: BREAST CANCER METASTATIC
     Dates: start: 20020516, end: 20030107
  12. FEMARA [Concomitant]
     Indication: BREAST CANCER METASTATIC
     Dosage: UNK, UNK
     Route: 048
     Dates: start: 20020516
  13. RADIOTHERAPY [Concomitant]
     Indication: BREAST CANCER METASTATIC
     Dates: start: 20020516, end: 20030107
  14. XELODA [Concomitant]
     Indication: BREAST CANCER METASTATIC
     Dosage: 6 COURSES
     Dates: start: 20040405, end: 20040809
  15. TAXOTERE [Concomitant]
     Indication: BREAST CANCER METASTATIC
     Dosage: 6 COURSES
     Dates: start: 20040405, end: 20040809
  16. TAXOTERE [Concomitant]
     Dates: start: 20070330
  17. CAELYX [Concomitant]
     Indication: BREAST CANCER METASTATIC
     Dosage: 3 COURSES
     Dates: start: 20050511, end: 20050704
  18. GENOX [Concomitant]
     Indication: BREAST CANCER METASTATIC
     Dosage: 5 COURSES
     Dates: start: 20050802, end: 20051128
  19. TAXOL [Concomitant]
     Indication: BREAST CANCER METASTATIC
     Dosage: 6 COURSES
     Dates: start: 20060213, end: 20060721
  20. TAXOL [Concomitant]
     Dates: start: 20060810, end: 20060905
  21. CARBOPLATIN [Concomitant]
     Indication: BREAST CANCER METASTATIC
     Dates: start: 20060810, end: 20060905
  22. METHOTREXATE [Concomitant]
     Indication: BREAST CANCER METASTATIC
     Dosage: 2 COURSES
     Dates: start: 20061026, end: 20061123

REACTIONS (8)
  - APHTHOUS STOMATITIS [None]
  - BACK PAIN [None]
  - CHEILITIS [None]
  - DENTAL CARE [None]
  - ORAL HERPES [None]
  - OSTEONECROSIS [None]
  - PELVIC PAIN [None]
  - TOOTH ABSCESS [None]
